FAERS Safety Report 7592507-3 (Version None)
Quarter: 2011Q3

REPORT INFORMATION
  Report Type: 
  Country: None (occurrence: None)
  Receive Date: 20110706
  Receipt Date: 20110630
  Transmission Date: 20111222
  Serious: Yes (Hospitalization)
  Sender: FDA-Public Use
  Company Number: JP-SANOFI-AVENTIS-2011SA025974

PATIENT
  Age: 71 Year
  Sex: Male
  Weight: 52 kg

DRUGS (16)
  1. PLAVIX [Suspect]
     Route: 048
     Dates: start: 20100131, end: 20100131
  2. ALLOPURINOL [Concomitant]
     Indication: HYPERURICAEMIA
     Route: 048
  3. RABEPRAZOLE SODIUM [Concomitant]
     Indication: PROPHYLAXIS
     Route: 048
  4. ATORVASTATIN [Concomitant]
     Indication: DYSLIPIDAEMIA
     Route: 048
  5. MIGLITOL [Concomitant]
     Indication: PROPHYLAXIS
     Route: 048
     Dates: start: 20100208
  6. AMARYL [Concomitant]
     Indication: DIABETES MELLITUS
     Route: 048
  7. ISOSORBIDE DINITRATE [Concomitant]
     Indication: PROPHYLAXIS
     Route: 048
  8. ASPIRIN [Concomitant]
     Route: 048
     Dates: start: 20100131, end: 20100131
  9. AMLODIPINE BESYLATE [Concomitant]
     Indication: HYPERTENSION
     Route: 048
  10. ALOSENN [Concomitant]
     Indication: CONSTIPATION
     Route: 048
  11. SIGMART [Concomitant]
     Route: 048
     Dates: start: 20100131
  12. AMPICILLIN SODIUM/SULBACTAM SODIUM [Concomitant]
     Indication: URINARY TRACT INFECTION
     Route: 048
     Dates: start: 20100201, end: 20100208
  13. BISOPROLOL FUMARATE [Concomitant]
     Indication: HYPERTENSION
     Route: 048
  14. PLAVIX [Suspect]
     Route: 048
     Dates: start: 20100201
  15. ASPIRIN [Concomitant]
     Route: 048
     Dates: start: 20100201
  16. IMIDAPRIL HYDROCHLORIDE [Concomitant]
     Indication: HYPERTENSION
     Route: 048
     Dates: start: 20100131

REACTIONS (1)
  - IN-STENT CORONARY ARTERY RESTENOSIS [None]
